FAERS Safety Report 5923749-8 (Version None)
Quarter: 2008Q3

REPORT INFORMATION
  Report Type: 
  Country: None (occurrence: None)
  Receive Date: 20080909
  Receipt Date: 20080528
  Transmission Date: 20090109
  Serious: Yes (Other)
  Sender: FDA-Public Use
  Company Number: 163-20785-07111531

PATIENT
  Age: 54 Year
  Sex: Female

DRUGS (3)
  1. THALOMID [Suspect]
     Indication: MULTIPLE MYELOMA
     Dosage: 50 MG, QD, ORAL : 100 MG, DAILY, ORAL
     Route: 048
     Dates: start: 20070701, end: 20070701
  2. THALOMID [Suspect]
     Indication: MULTIPLE MYELOMA
     Dosage: 50 MG, QD, ORAL : 100 MG, DAILY, ORAL
     Route: 048
     Dates: start: 20070711
  3. DEXAMETHASONE TAB [Concomitant]

REACTIONS (6)
  - DIZZINESS [None]
  - FALL [None]
  - FATIGUE [None]
  - NEUROPATHY PERIPHERAL [None]
  - SYNCOPE [None]
  - URINARY TRACT INFECTION [None]
